FAERS Safety Report 7125667-9 (Version None)
Quarter: 2010Q4

REPORT INFORMATION
  Report Type: 
  Country: None (occurrence: None)
  Receive Date: 20101129
  Receipt Date: 20101116
  Transmission Date: 20110411
  Serious: Yes (Other)
  Sender: FDA-Public Use
  Company Number: A0797805A

PATIENT
  Age: 74 Year
  Sex: Male

DRUGS (6)
  1. AVANDIA [Suspect]
     Indication: DIABETES MELLITUS
     Dosage: 8MG TWICE PER DAY
     Route: 048
     Dates: start: 20000101
  2. SIMVASTATIN [Concomitant]
  3. RAMIPRIL [Concomitant]
  4. GLYBURIDE [Concomitant]
  5. INDOMETHACIN [Concomitant]
  6. ALLOPURINOL [Concomitant]

REACTIONS (2)
  - BLINDNESS [None]
  - OPEN ANGLE GLAUCOMA [None]
